FAERS Safety Report 18307702 (Version 1)
Quarter: 2020Q3

REPORT INFORMATION
  Report Type: Report from Study
  Country: BR (occurrence: BR)
  Receive Date: 20200924
  Receipt Date: 20200924
  Transmission Date: 20201103
  Serious: Yes (Other)
  Sender: FDA-Public Use
  Company Number: NVSC2020BR259261

PATIENT
  Age: 11 Year
  Sex: Female

DRUGS (1)
  1. OMNITROPE [Suspect]
     Active Substance: SOMATROPIN
     Indication: GROWTH DISORDER
     Dosage: 1.5 UNK, QD
     Route: 065
     Dates: start: 201911, end: 202009

REACTIONS (1)
  - Type 1 diabetes mellitus [Unknown]

NARRATIVE: CASE EVENT DATE: 20200817
